FAERS Safety Report 25855811 (Version 1)
Quarter: 2025Q3

REPORT INFORMATION
  Report Type: Spontaneous
  Country: EU (occurrence: EU)
  Receive Date: 20250928
  Receipt Date: 20250928
  Transmission Date: 20251021
  Serious: Yes (Other)
  Sender: AMGEN
  Company Number: None

PATIENT
  Age: 83 Year
  Sex: Female
  Weight: 62 kg

DRUGS (2)
  1. VECTIBIX [Suspect]
     Active Substance: PANITUMUMAB
     Indication: Adenocarcinoma of colon
     Route: 040
     Dates: start: 20250403, end: 20250403
  2. IRINOTECAN [Suspect]
     Active Substance: IRINOTECAN
     Indication: Adenocarcinoma of colon
     Route: 040
     Dates: start: 20250403, end: 20250403

REACTIONS (2)
  - Azotaemia [Recovering/Resolving]
  - Haemoglobin decreased [Recovering/Resolving]

NARRATIVE: CASE EVENT DATE: 20250414
